FAERS Safety Report 25960274 (Version 2)
Quarter: 2025Q4

REPORT INFORMATION
  Report Type: Spontaneous
  Country: US (occurrence: US)
  Receive Date: 20251026
  Receipt Date: 20251026
  Transmission Date: 20260118
  Serious: No
  Sender: SANDOZ
  Company Number: US-SANDOZ-SDZ2025US078860

PATIENT

DRUGS (1)
  1. ESTRADIOL [Suspect]
     Active Substance: ESTRADIOL
     Indication: Product used for unknown indication
     Dosage: (STRENGTH 0.025 MG / 1 10)
     Route: 065

REACTIONS (4)
  - Night sweats [Unknown]
  - Blood oestrogen abnormal [Unknown]
  - Poor quality device used [Unknown]
  - Product adhesion issue [Unknown]
